FAERS Safety Report 24266399 (Version 1)
Quarter: 2024Q3

REPORT INFORMATION
  Report Type: Spontaneous
  Country: CN (occurrence: CN)
  Receive Date: 20240830
  Receipt Date: 20240830
  Transmission Date: 20241017
  Serious: Yes (Life-Threatening)
  Sender: TAKEDA
  Company Number: CN-JNJFOC-20240863408

PATIENT
  Age: 61 Year
  Sex: Female
  Weight: 60 kg

DRUGS (5)
  1. BORTEZOMIB [Suspect]
     Active Substance: BORTEZOMIB
     Indication: Plasma cell myeloma
     Dosage: 2 MILLIGRAM
     Route: 065
     Dates: start: 20240817
  2. DEXAMETHASONE [Suspect]
     Active Substance: DEXAMETHASONE
     Indication: Plasma cell myeloma
     Dosage: 10 MILLIGRAM
     Route: 065
     Dates: start: 20240817
  3. DARZALEX [Suspect]
     Active Substance: DARATUMUMAB
     Indication: Plasma cell myeloma
     Dosage: 400 MILLIGRAM
     Route: 041
     Dates: start: 20240817, end: 20240817
  4. SODIUM CHLORIDE [Concomitant]
     Active Substance: SODIUM CHLORIDE
     Dosage: 500 MILLILITER
     Route: 041
     Dates: start: 20240817, end: 20240817
  5. ESOMEPRAZOLE SODIUM [Concomitant]
     Active Substance: ESOMEPRAZOLE SODIUM
     Indication: Gastrointestinal disorder therapy
     Dosage: 40 MILLIGRAM
     Route: 042

REACTIONS (4)
  - Infusion related reaction [Recovering/Resolving]
  - Chills [Recovering/Resolving]
  - Oxygen saturation decreased [Recovering/Resolving]
  - Pyrexia [Recovering/Resolving]

NARRATIVE: CASE EVENT DATE: 20240817
